FAERS Safety Report 20670642 (Version 1)
Quarter: 2022Q2

REPORT INFORMATION
  Report Type: Spontaneous
  Country: None (occurrence: GB)
  Receive Date: 20220404
  Receipt Date: 20220404
  Transmission Date: 20220720
  Serious: Yes (Other)
  Sender: FDA-Public Use
  Company Number: GB-B.Braun Medical Inc.-2127373

PATIENT
  Age: 67 Year
  Sex: Male

DRUGS (3)
  1. DEXTROSE [Suspect]
     Active Substance: DEXTROSE
  2. VITAMIN D [Concomitant]
     Active Substance: VITAMIN D NOS
  3. IBUPROFEN [Concomitant]
     Active Substance: IBUPROFEN

REACTIONS (4)
  - Infusion related reaction [Recovered/Resolved]
  - Rash maculo-papular [Recovered/Resolved]
  - Erythema [Recovered/Resolved]
  - Pruritus [Recovered/Resolved]
